FAERS Safety Report 12313050 (Version 1)
Quarter: 2016Q2

REPORT INFORMATION
  Report Type: Spontaneous
  Country: GB (occurrence: GB)
  Receive Date: 20160428
  Receipt Date: 20160428
  Transmission Date: 20160815
  Serious: Yes (Hospitalization)
  Sender: FDA-Public Use
  Company Number: GB-AUROBINDO-AUR-APL-2016-05035

PATIENT
  Age: 91 Year
  Sex: Male
  Weight: 80 kg

DRUGS (9)
  1. PRIMIDONE. [Concomitant]
     Active Substance: PRIMIDONE
     Indication: ESSENTIAL TREMOR
     Dosage: 250 MG, 3 TIMES A DAY
     Route: 065
  2. LEVOTHYROXINE. [Concomitant]
     Active Substance: LEVOTHYROXINE
     Indication: PRODUCT USED FOR UNKNOWN INDICATION
     Route: 065
  3. SODIUM VALPROATE [Concomitant]
     Active Substance: VALPROATE SODIUM
     Indication: PRODUCT USED FOR UNKNOWN INDICATION
     Dosage: 200 MG, TWO TIMES A DAY
     Route: 065
  4. FLUDROCORTISONE [Concomitant]
     Active Substance: FLUDROCORTISONE
     Indication: ORTHOSTATIC HYPOTENSION
     Dosage: 100 ?G, ONCE A DAY
     Route: 065
  5. ADCAL D3 [Concomitant]
     Active Substance: CALCIUM CARBONATE\CHOLECALCIFEROL
     Indication: PRODUCT USED FOR UNKNOWN INDICATION
     Dosage: 2 DF, ONCE A DAY
     Route: 065
  6. CLOPIDOGREL [Suspect]
     Active Substance: CLOPIDOGREL BISULFATE
     Indication: PROPHYLAXIS
     Dosage: 75 MG, ONCE A DAY
     Route: 048
     Dates: start: 201405, end: 20160331
  7. LAXIDO                             /07474401/ [Concomitant]
     Indication: CONSTIPATION
     Route: 065
  8. MEMANTINE. [Concomitant]
     Active Substance: MEMANTINE
     Indication: DEMENTIA
     Dosage: 20 MG, ONCE A DAY
     Route: 065
  9. LANSOPRAZOLE. [Concomitant]
     Active Substance: LANSOPRAZOLE
     Indication: PRODUCT USED FOR UNKNOWN INDICATION
     Dosage: 30 MG, ONCE A DAY
     Route: 065

REACTIONS (2)
  - Bleeding time prolonged [Recovered/Resolved]
  - Wound haemorrhage [Recovered/Resolved]

NARRATIVE: CASE EVENT DATE: 20160330
